FAERS Safety Report 10554608 (Version 1)
Quarter: 2014Q4

REPORT INFORMATION
  Report Type: Spontaneous
  Country: US (occurrence: None)
  Receive Date: 20141029
  Receipt Date: 20141029
  Transmission Date: 20150529
  Serious: Yes (Other)
  Sender: FDA-Public Use
  Company Number: None

PATIENT
  Age: 38 Year
  Sex: Female
  Weight: 63.96 kg

DRUGS (1)
  1. XULANE [Suspect]
     Active Substance: ETHINYL ESTRADIOL\NORELGESTROMIN
     Indication: CONTRACEPTION
     Dosage: ZULANE 1 EVERY WEEK APPLIED AS MEDICATED PATCH TO SKIN
     Route: 061
     Dates: start: 20140930, end: 20141026

REACTIONS (6)
  - Headache [None]
  - Dizziness [None]
  - Pain [None]
  - Activities of daily living impaired [None]
  - Abdominal pain upper [None]
  - Menorrhagia [None]

NARRATIVE: CASE EVENT DATE: 20140927
